FAERS Safety Report 6461762-5 (Version None)
Quarter: 2009Q4

REPORT INFORMATION
  Report Type: 
  Country: None (occurrence: None)
  Receive Date: 20091130
  Receipt Date: 20091117
  Transmission Date: 20100525
  Serious: Yes (Other)
  Sender: FDA-Public Use
  Company Number: PHHY2009CA51116

PATIENT
  Sex: Male

DRUGS (2)
  1. DIOVAN HCT [Suspect]
     Dosage: 1 TABLET (160/12.5 MG)
     Route: 048
  2. GLUCOSAMINE SULFATE [Concomitant]

REACTIONS (1)
  - KNEE ARTHROPLASTY [None]
